FAERS Safety Report 9375830 (Version 1)
Quarter: 2013Q2

REPORT INFORMATION
  Report Type: Spontaneous
  Country: US (occurrence: US)
  Receive Date: 20130628
  Receipt Date: 20130628
  Transmission Date: 20140414
  Serious: No
  Sender: FDA-Public Use
  Company Number: US-US-EMD SERONO, INC.-7067677

PATIENT
  Sex: Female
  Weight: 79 kg

DRUGS (4)
  1. REBIF [Suspect]
     Indication: MULTIPLE SCLEROSIS
     Route: 058
     Dates: start: 20110520
  2. REBIF [Suspect]
     Route: 058
     Dates: start: 20110622
  3. AMITRIPTYLINE [Concomitant]
     Indication: MULTIPLE SCLEROSIS
  4. LEVOTHYROXINE [Concomitant]
     Indication: PRODUCT USED FOR UNKNOWN INDICATION

REACTIONS (2)
  - Chest discomfort [Unknown]
  - Fatigue [Unknown]
